FAERS Safety Report 25792876 (Version 4)
Quarter: 2025Q4

REPORT INFORMATION
  Report Type: Spontaneous
  Country: US (occurrence: US)
  Receive Date: 20250911
  Receipt Date: 20251103
  Transmission Date: 20260118
  Serious: No
  Sender: BIOGEN
  Company Number: US-BIOGEN-2025BI01322855

PATIENT
  Age: 65 Year
  Sex: Male

DRUGS (6)
  1. AVONEX [Suspect]
     Active Substance: INTERFERON BETA-1A
     Indication: Multiple sclerosis
  2. AVONEX [Suspect]
     Active Substance: INTERFERON BETA-1A
  3. AVONEX [Suspect]
     Active Substance: INTERFERON BETA-1A
  4. AVONEX [Suspect]
     Active Substance: INTERFERON BETA-1A
  5. AVONEX [Suspect]
     Active Substance: INTERFERON BETA-1A
     Dates: start: 20241113
  6. AVONEX [Suspect]
     Active Substance: INTERFERON BETA-1A
     Dosage: DOSAGE TEXT:PAST REGIMEN
     Route: 065
     Dates: start: 20031122, end: 20241013

REACTIONS (4)
  - Blood cholesterol increased [Unknown]
  - Fatigue [Not Recovered/Not Resolved]
  - Somnolence [Unknown]
  - Pain in extremity [Not Recovered/Not Resolved]
